FAERS Safety Report 9910200 (Version 1)
Quarter: 2014Q1

REPORT INFORMATION
  Report Type: Spontaneous
  Country: HR (occurrence: HR)
  Receive Date: 20140219
  Receipt Date: 20140219
  Transmission Date: 20141002
  Serious: Yes (Hospitalization)
  Sender: FDA-Public Use
  Company Number: HR-B.I. PHARMACEUTICALS,INC./RIDGEFIELD-2014-BI-06739HR

PATIENT
  Sex: Male

DRUGS (2)
  1. TRAJENTA [Suspect]
     Indication: TYPE 2 DIABETES MELLITUS
     Dosage: 5 MG
     Route: 048
  2. NR/METFORMIN [Concomitant]

REACTIONS (1)
  - Pancreatitis acute [Unknown]
